FAERS Safety Report 21734145 (Version 1)
Quarter: 2022Q4

REPORT INFORMATION
  Report Type: Spontaneous
  Country: US (occurrence: None)
  Receive Date: 20221215
  Receipt Date: 20221215
  Transmission Date: 20230113
  Serious: Yes (Other)
  Sender: FDA-Public Use
  Company Number: US-ROCHE-3231633

PATIENT

DRUGS (1)
  1. OCREVUS [Suspect]
     Active Substance: OCRELIZUMAB
     Indication: Relapsing-remitting multiple sclerosis
     Route: 065

REACTIONS (6)
  - Sensory loss [Unknown]
  - Fall [Unknown]
  - Muscle spasms [Unknown]
  - Clonus [Unknown]
  - Influenza [Unknown]
  - Pneumonia [Unknown]
